FAERS Safety Report 9516326 (Version 1)
Quarter: 2013Q1

REPORT INFORMATION
  Report Type: Spontaneous
  Country: US (occurrence: None)
  Receive Date: 20130305
  Receipt Date: 20130305
  Transmission Date: 20140127
  Serious: Yes (Other)
  Sender: FDA-Public Use
  Company Number: 163-21880-12012053

PATIENT
  Age: 72 Year
  Sex: Female

DRUGS (1)
  1. REVLIMID [Suspect]
     Indication: PLASMA CELL MYELOMA
     Dosage: X 28 DAYS
     Route: 048
     Dates: start: 20090505, end: 20120106

REACTIONS (4)
  - Diarrhoea [None]
  - Muscle spasms [None]
  - Malaise [None]
  - Weight decreased [None]
